FAERS Safety Report 9805052 (Version 2)
Quarter: 2014Q1

REPORT INFORMATION
  Report Type: Spontaneous
  Country: US (occurrence: US)
  Receive Date: 20140109
  Receipt Date: 20140121
  Transmission Date: 20141002
  Serious: Yes (Hospitalization)
  Sender: FDA-Public Use
  Company Number: US-BIOGENIDEC-2014BI001462

PATIENT
  Sex: Female

DRUGS (3)
  1. AVONEX [Suspect]
     Indication: MULTIPLE SCLEROSIS
     Route: 030
  2. AVONEX [Suspect]
     Indication: MULTIPLE SCLEROSIS
     Route: 030
     Dates: start: 19980701, end: 20130101
  3. AVONEX [Suspect]
     Indication: MULTIPLE SCLEROSIS
     Route: 030

REACTIONS (23)
  - Limb operation [Unknown]
  - Memory impairment [Unknown]
  - Joint swelling [Unknown]
  - Infection [Unknown]
  - Erythema [Unknown]
  - Nasopharyngitis [Unknown]
  - Gastric disorder [Unknown]
  - Dyspepsia [Unknown]
  - Injection site ulcer [Unknown]
  - Neoplasm [Unknown]
  - Scar [Unknown]
  - Balance disorder [Unknown]
  - Carpal tunnel syndrome [Unknown]
  - Fear [Unknown]
  - Arthropathy [Unknown]
  - Fall [Recovered/Resolved]
  - General symptom [Unknown]
  - Malaise [Unknown]
  - Injection site pain [Unknown]
  - Pain [Unknown]
  - Chest pain [Unknown]
  - Drug ineffective [Unknown]
  - Asthenia [Unknown]
